FAERS Safety Report 8581231-6 (Version None)
Quarter: 2012Q3

REPORT INFORMATION
  Report Type: 
  Country: None (occurrence: None)
  Receive Date: 20120809
  Receipt Date: 20120805
  Transmission Date: 20120928
  Serious: Yes (Hospitalization, Other)
  Sender: FDA-Public Use
  Company Number: PHHY2012IL066367

PATIENT
  Age: 84 Year
  Sex: Male

DRUGS (13)
  1. FOLIC ACID [Concomitant]
     Route: 048
  2. WARFARIN SODIUM [Concomitant]
     Route: 048
  3. ATORVASTATIN [Concomitant]
     Route: 048
  4. METFORMIN HYDROCHLORIDE [Concomitant]
     Route: 048
  5. CLOPIDOGREL [Concomitant]
     Dosage: 75 MG, DAILY
     Route: 048
  6. FERROUS SULFATE TAB [Concomitant]
     Route: 048
  7. VITAMIN B COMPLEX CAP [Concomitant]
     Route: 048
  8. ALFUZOSIN HYDROCHLORIDE [Concomitant]
     Route: 048
  9. EXELON [Suspect]
     Indication: MEMORY IMPAIRMENT
     Dosage: 2 DF, PER DAY
     Route: 048
  10. FAMOTIDINE [Concomitant]
     Route: 048
  11. ASPIRIN [Concomitant]
     Route: 048
  12. LERCANIDIPINE [Concomitant]
     Route: 048
  13. REPAGLINIDE [Concomitant]
     Route: 048

REACTIONS (6)
  - APHASIA [None]
  - CEREBROVASCULAR ACCIDENT [None]
  - FATIGUE [None]
  - MUSCULAR WEAKNESS [None]
  - INSOMNIA [None]
  - CONCOMITANT DISEASE AGGRAVATED [None]
